FAERS Safety Report 25870366 (Version 1)
Quarter: 2025Q4

REPORT INFORMATION
  Report Type: Spontaneous
  Country: CO (occurrence: CO)
  Receive Date: 20251001
  Receipt Date: 20251001
  Transmission Date: 20260118
  Serious: Yes (Hospitalization, Other)
  Sender: Harrow Health
  Company Number: OTH

PATIENT
  Age: 77 Year
  Sex: Female

DRUGS (1)
  1. VIGAMOX [Suspect]
     Active Substance: MOXIFLOXACIN HYDROCHLORIDE
     Indication: Keratitis bacterial
     Route: 065

REACTIONS (4)
  - Eyelid infection [Recovered/Resolved]
  - Gangrene [Recovered/Resolved]
  - Disease progression [Recovered/Resolved]
  - Off label use [Unknown]
